FAERS Safety Report 11620879 (Version 3)
Quarter: 2015Q4

REPORT INFORMATION
  Report Type: Report from Study
  Country: FR (occurrence: FR)
  Receive Date: 20151012
  Receipt Date: 20151207
  Transmission Date: 20160304
  Serious: Yes (Other)
  Sender: FDA-Public Use
  Company Number: FR-BRISTOL-MYERS SQUIBB COMPANY-BMS-2015-067213

PATIENT
  Age: 61 Year
  Sex: Male
  Weight: 85 kg

DRUGS (6)
  1. NIVOLUMAB [Suspect]
     Active Substance: NIVOLUMAB
     Indication: NON-SMALL CELL LUNG CANCER
     Dosage: 3 MG/KG, 270MG
     Route: 042
     Dates: start: 20150625, end: 20150806
  2. SPIRIVA [Concomitant]
     Active Substance: TIOTROPIUM BROMIDE MONOHYDRATE
     Indication: ASTHMA
     Dosage: UNK
     Route: 048
     Dates: start: 20150820
  3. OSLIF [Concomitant]
     Active Substance: INDACATEROL
     Indication: ASTHMA
     Dosage: UNK
     Route: 048
     Dates: start: 20150820
  4. OSLIF [Concomitant]
     Active Substance: INDACATEROL
     Indication: LUNG DISORDER
  5. SPIRIVA [Concomitant]
     Active Substance: TIOTROPIUM BROMIDE MONOHYDRATE
     Indication: LUNG DISORDER
  6. POLARAMINE [Concomitant]
     Active Substance: DEXCHLORPHENIRAMINE MALEATE
     Indication: PREMEDICATION
     Route: 065

REACTIONS (7)
  - Hypoxia [Recovered/Resolved with Sequelae]
  - Hypersensitivity [Recovered/Resolved]
  - White blood cell disorder [Unknown]
  - Respiratory distress [Recovered/Resolved]
  - Malignant neoplasm progression [Unknown]
  - Dizziness [Recovered/Resolved]
  - Cough [Recovered/Resolved]

NARRATIVE: CASE EVENT DATE: 20150708
